FAERS Safety Report 18535596 (Version 1)
Quarter: 2020Q4

REPORT INFORMATION
  Report Type: Report from Study
  Country: IN (occurrence: IN)
  Receive Date: 20201123
  Receipt Date: 20201123
  Transmission Date: 20210114
  Serious: Yes (Death, Hospitalization)
  Sender: FDA-Public Use
  Company Number: IN-ASTRAZENECA-2020SF54232

PATIENT
  Age: 26108 Day
  Sex: Male

DRUGS (1)
  1. IMFINZI [Suspect]
     Active Substance: DURVALUMAB
     Dosage: 500.0MG UNKNOWN
     Route: 042
     Dates: start: 20200727, end: 20201023

REACTIONS (1)
  - Death [Fatal]

NARRATIVE: CASE EVENT DATE: 20201023
